FAERS Safety Report 7315000-1 (Version None)
Quarter: 2011Q1

REPORT INFORMATION
  Report Type: 
  Country: None (occurrence: None)
  Receive Date: 20110225
  Receipt Date: 20100408
  Transmission Date: 20110831
  Serious: No
  Sender: FDA-Public Use
  Company Number: US-MYLANLABS-2010S1003614

PATIENT
  Age: 16 Year
  Sex: Female
  Weight: 104.33 kg

DRUGS (1)
  1. AMNESTEEM [Suspect]
     Indication: HIDRADENITIS
     Route: 048
     Dates: start: 20100203, end: 20100226

REACTIONS (3)
  - PHARYNGEAL OEDEMA [None]
  - HEADACHE [None]
  - DRUG HYPERSENSITIVITY [None]
